FAERS Safety Report 4522681-4 (Version None)
Quarter: 2004Q4

REPORT INFORMATION
  Report Type: 
  Country: None (occurrence: None)
  Receive Date: 20041025
  Receipt Date: 20040706
  Transmission Date: 20050328
  Serious: Yes (Other)
  Sender: FDA-Public Use
  Company Number: HQWYE975410JUL04

PATIENT
  Age: 52 Year
  Sex: Female

DRUGS (3)
  1. PREMARIN [Suspect]
     Indication: OESTROGEN REPLACEMENT THERAPY
     Dates: start: 19990714, end: 20001006
  2. MEDROXYPROGESTERONE ACETATE [Suspect]
     Indication: HORMONE REPLACEMENT THERAPY
     Dates: start: 19990714, end: 20001006
  3. PROVERA [Suspect]
     Indication: HORMONE REPLACEMENT THERAPY
     Dates: start: 19990714, end: 20001006

REACTIONS (1)
  - BREAST CANCER [None]
